FAERS Safety Report 9182014 (Version 1)
Quarter: 2012Q4

REPORT INFORMATION
  Report Type: 
  Country: DE (occurrence: DE)
  Receive Date: 20121030
  Receipt Date: 20121030
  Transmission Date: 20130627
  Serious: Yes (Other)
  Sender: FDA-Public Use
  Company Number: PHHY2012DE096755

PATIENT
  Weight: 1.86 kg

DRUGS (11)
  1. FORMOTEROL [Suspect]
     Dosage: UNK UKN, UNK
     Route: 064
  2. BECLOMETHASONE [Suspect]
     Route: 064
  3. CITALOPRAM [Concomitant]
     Dosage: Maternal doe: 20 mg/day
     Route: 064
  4. QUETIAPINE [Concomitant]
     Dosage: maternal dose: 150 mg/day
     Route: 064
  5. DOXEPIN [Concomitant]
     Dosage: maternal dose: 50 mg/day
     Route: 064
  6. REPROTEROL [Concomitant]
     Route: 064
  7. CROMOGLICATE [Concomitant]
     Route: 064
  8. ETHINYLESTRADIOL [Concomitant]
     Route: 064
  9. LEVONORGESTREL [Concomitant]
     Route: 064
  10. MADOPAR [Concomitant]
     Route: 064
  11. RESTEX [Concomitant]
     Route: 064

REACTIONS (3)
  - Premature baby [Unknown]
  - Respiratory distress [Unknown]
  - Foetal exposure during pregnancy [Unknown]
